FAERS Safety Report 10019116 (Version 1)
Quarter: 2014Q1

REPORT INFORMATION
  Report Type: Spontaneous
  Country: US (occurrence: US)
  Receive Date: 20140318
  Receipt Date: 20140318
  Transmission Date: 20141002
  Serious: No
  Sender: FDA-Public Use
  Company Number: US-BAUSCH-BL-2013-005009

PATIENT
  Sex: Female

DRUGS (1)
  1. BACITRACIN ZINC AND POLYMYXIN B SULFATE OPHTHALMIC OINTMENT USP [Suspect]
     Indication: EYE INFECTION
     Dosage: ONE RIBBON INTO RIGHT EYE TWICE DAILY
     Route: 047
     Dates: start: 20130905, end: 20130910

REACTIONS (2)
  - Erythema [Recovering/Resolving]
  - Feeling hot [Recovering/Resolving]
